FAERS Safety Report 5159155-6 (Version None)
Quarter: 2006Q4

REPORT INFORMATION
  Report Type: 
  Country: None (occurrence: None)
  Receive Date: 20061116
  Receipt Date: 20061107
  Transmission Date: 20070319
  Serious: Yes (Death, Hospitalization)
  Sender: FDA-Public Use
  Company Number: FRWYE444107NOV06

PATIENT
  Age: 84 Year
  Sex: Female

DRUGS (3)
  1. EFFEXOR [Suspect]
     Dosage: 1 DOSE 1X PER 1 DAY ORAL
     Route: 048
     Dates: start: 20060818, end: 20060821
  2. PERSANTINE [Concomitant]
  3. DILTIAZEM [Concomitant]

REACTIONS (3)
  - BRAIN HERNIATION [None]
  - HYPONATRAEMIA [None]
  - SUBDURAL HAEMATOMA [None]
